FAERS Safety Report 19419201 (Version 1)
Quarter: 2021Q2

REPORT INFORMATION
  Report Type: Spontaneous
  Country: IT (occurrence: IT)
  Receive Date: 20210615
  Receipt Date: 20210615
  Transmission Date: 20210717
  Serious: Yes (Other)
  Sender: FDA-Public Use
  Company Number: IT-PFIZER INC-2021653147

PATIENT
  Age: 47 Year
  Sex: Female
  Weight: 90 kg

DRUGS (8)
  1. ZANTIPRES [Suspect]
     Active Substance: ZOFENOPRIL
     Dosage: 28 TABLETS
     Route: 048
  2. XANAX [Suspect]
     Active Substance: ALPRAZOLAM
     Dosage: 12 TABLETS
     Route: 048
  3. TACHIPIRINA [Suspect]
     Active Substance: ACETAMINOPHEN
     Dosage: 16 DIVIDABLE TABLETS
     Route: 048
  4. ZARELIS [Suspect]
     Active Substance: VENLAFAXINE HYDROCHLORIDE
     Dosage: 10 TABLETS
     Route: 048
  5. DAPAROX [PAROXETINE HYDROCHLORIDE] [Suspect]
     Active Substance: PAROXETINE HYDROCHLORIDE
     Dosage: 60 COATED TABLETS
     Route: 048
  6. INVEGA [Suspect]
     Active Substance: PALIPERIDONE
     Dosage: 28 TABLETS
     Route: 048
  7. LERCANIDIPINE [Suspect]
     Active Substance: LERCANIDIPINE
     Dosage: 28 TABLETS
     Route: 048
  8. ZYPREXA [Suspect]
     Active Substance: OLANZAPINE
     Dosage: 28 COATED TABLET
     Route: 048

REACTIONS (3)
  - Sopor [Unknown]
  - Intentional self-injury [Unknown]
  - Overdose [Unknown]
